FAERS Safety Report 22038462 (Version 6)
Quarter: 2023Q1

REPORT INFORMATION
  Report Type: Spontaneous
  Country: US (occurrence: US)
  Receive Date: 20230227
  Receipt Date: 20230330
  Transmission Date: 20230418
  Serious: No
  Sender: FDA-Public Use
  Company Number: US-002147023-NVSC2023US044361

PATIENT
  Sex: Female

DRUGS (1)
  1. PROMACTA [Suspect]
     Active Substance: ELTROMBOPAG OLAMINE
     Indication: Immune thrombocytopenia
     Dosage: 25 MG, QOD
     Route: 048
     Dates: start: 202203

REACTIONS (4)
  - Platelet count decreased [Unknown]
  - Asthenia [Unknown]
  - Liver function test increased [Unknown]
  - Fatigue [Unknown]
